FAERS Safety Report 4721125-7 (Version None)
Quarter: 2005Q3

REPORT INFORMATION
  Report Type: 
  Country: None (occurrence: None)
  Receive Date: 20050719
  Receipt Date: 20050112
  Transmission Date: 20060218
  Serious: Yes (Other)
  Sender: FDA-Public Use
  Company Number: 2004101194

PATIENT
  Sex: Female

DRUGS (1)
  1. CELEBREX [Suspect]
     Indication: ARTHRITIS
     Dosage: 200 MG (200 MG,1 IN 1 D), ORAL
     Route: 048

REACTIONS (4)
  - BACK PAIN [None]
  - GASTRIC ULCER [None]
  - GASTRITIS EROSIVE [None]
  - HIATUS HERNIA [None]
